FAERS Safety Report 20305263 (Version 1)
Quarter: 2022Q1

REPORT INFORMATION
  Report Type: Spontaneous
  Country: US (occurrence: US)
  Receive Date: 20220106
  Receipt Date: 20220106
  Transmission Date: 20220423
  Serious: No
  Sender: FDA-Public Use
  Company Number: US-PFIZER INC-2021570942

PATIENT
  Age: 70 Year
  Sex: Female
  Weight: 68.04 kg

DRUGS (3)
  1. XELJANZ XR [Suspect]
     Active Substance: TOFACITINIB CITRATE
     Indication: Rheumatoid arthritis
     Dosage: 11 MG, DAILY
     Route: 048
     Dates: start: 2020
  2. BRILINTA [Suspect]
     Active Substance: TICAGRELOR
     Indication: Arterial stent insertion
     Dosage: 90 MG, 2X/DAY
     Route: 048
     Dates: start: 20210421
  3. BRILINTA [Suspect]
     Active Substance: TICAGRELOR
     Indication: Arterial occlusive disease

REACTIONS (2)
  - Contusion [Not Recovered/Not Resolved]
  - Condition aggravated [Not Recovered/Not Resolved]
